FAERS Safety Report 10735451 (Version 1)
Quarter: 2015Q1

REPORT INFORMATION
  Report Type: Spontaneous
  Country: DE (occurrence: DE)
  Receive Date: 20150126
  Receipt Date: 20150126
  Transmission Date: 20150721
  Serious: Yes (Death)
  Sender: FDA-Public Use
  Company Number: DE-ROCHE-1524727

PATIENT
  Age: 56 Year
  Sex: Male

DRUGS (2)
  1. LUCENTIS [Suspect]
     Active Substance: RANIBIZUMAB
     Route: 050
     Dates: start: 20140901
  2. LUCENTIS [Suspect]
     Active Substance: RANIBIZUMAB
     Indication: PRODUCT USED FOR UNKNOWN INDICATION
     Dosage: (IN FORM OF SPLITTED UNITS, NINE TIMES)
     Route: 050

REACTIONS (2)
  - Myocardial infarction [Fatal]
  - Multiple use of single-use product [Unknown]

NARRATIVE: CASE EVENT DATE: 20141010
